FAERS Safety Report 10309856 (Version 2)
Quarter: 2014Q4

REPORT INFORMATION
  Report Type: Spontaneous
  Country: BR (occurrence: BR)
  Receive Date: 20140717
  Receipt Date: 20141009
  Transmission Date: 20150528
  Serious: Yes (Hospitalization, Disabling, Other)
  Sender: FDA-Public Use
  Company Number: BR-BRISTOL-MYERS SQUIBB COMPANY-21182498

PATIENT
  Age: 58 Year
  Sex: Female
  Weight: 90 kg

DRUGS (9)
  1. ABLOK PLUS [Concomitant]
     Active Substance: ATENOLOL\CHLORTHALIDONE
  2. OMEPRAZOLE. [Suspect]
     Active Substance: OMEPRAZOLE
     Dosage: 20MG
     Route: 048
     Dates: start: 2007
  3. PLASIL [Concomitant]
     Active Substance: METOCLOPRAMIDE HYDROCHLORIDE
  4. CRESTOR [Suspect]
     Active Substance: ROSUVASTATIN CALCIUM
     Indication: BLOOD CHOLESTEROL
     Dosage: DOSE REDUCED 20 MG TO 10MG
     Route: 048
     Dates: start: 2007
  5. LIPIDIL [Concomitant]
     Active Substance: FENOFIBRATE
     Indication: BLOOD CHOLESTEROL
  6. GLIFAGE [Suspect]
     Active Substance: METFORMIN HYDROCHLORIDE
     Indication: DIABETES MELLITUS
     Dosage: 5MG
     Route: 048
     Dates: start: 2007
  7. DEPAKENE [Concomitant]
     Active Substance: VALPROIC ACID
     Indication: BIPOLAR DISORDER
  8. FENOFIBRATE. [Concomitant]
     Active Substance: FENOFIBRATE
  9. PURAN [Concomitant]
     Active Substance: LEVOTHYROXINE SODIUM
     Indication: PITUITARY TUMOUR

REACTIONS (5)
  - Pituitary tumour benign [Recovered/Resolved]
  - Haemorrhagic stroke [Recovered/Resolved with Sequelae]
  - Nausea [Recovering/Resolving]
  - Fistula [Not Recovered/Not Resolved]
  - Pituitary tumour recurrent [Recovered/Resolved]

NARRATIVE: CASE EVENT DATE: 201310
